FAERS Safety Report 5694507-7 (Version None)
Quarter: 2008Q2

REPORT INFORMATION
  Report Type: 
  Country: None (occurrence: None)
  Receive Date: 20080404
  Receipt Date: 20080326
  Transmission Date: 20081010
  Serious: Yes (Hospitalization)
  Sender: FDA-Public Use
  Company Number: FR-JNJFOC-20080107478

PATIENT
  Age: 21 Year
  Sex: Male

DRUGS (6)
  1. REMICADE [Suspect]
     Route: 042
  2. REMICADE [Suspect]
     Route: 042
  3. REMICADE [Suspect]
     Indication: CROHN'S DISEASE
     Route: 042
  4. PREDNISONE [Suspect]
     Indication: CROHN'S DISEASE
     Route: 048
  5. NOVATREX [Suspect]
     Indication: CROHN'S DISEASE
     Route: 048
  6. SPECIAFOLDINE [Concomitant]
     Indication: NUTRITIONAL SUPPORT

REACTIONS (2)
  - EPSTEIN-BARR VIRUS INFECTION [None]
  - LYMPHOPROLIFERATIVE DISORDER [None]
